FAERS Safety Report 21761148 (Version 1)
Quarter: 2022Q4

REPORT INFORMATION
  Report Type: Spontaneous
  Country: CN (occurrence: CN)
  Receive Date: 20221221
  Receipt Date: 20221221
  Transmission Date: 20230113
  Serious: Yes (Other)
  Sender: FDA-Public Use
  Company Number: CN-PFIZER INC-PV202200125552

PATIENT
  Age: 46 Year
  Sex: Female

DRUGS (2)
  1. GLIPIZIDE [Suspect]
     Active Substance: GLIPIZIDE
     Dosage: UNK
     Route: 048
     Dates: start: 20120901, end: 20220828
  2. KA BO PING [Concomitant]
     Indication: Diabetes mellitus
     Dosage: 50 MG, 3X/DAY
     Route: 048
     Dates: start: 20140829, end: 20220828

REACTIONS (1)
  - Hypoglycaemic coma [Recovering/Resolving]

NARRATIVE: CASE EVENT DATE: 20220828
